FAERS Safety Report 25422161 (Version 1)
Quarter: 2025Q2

REPORT INFORMATION
  Report Type: Other
  Country: US (occurrence: US)
  Receive Date: 20250611
  Receipt Date: 20250611
  Transmission Date: 20250717
  Serious: Yes (Hospitalization)
  Sender: ANI
  Company Number: US-ANIPHARMA-023135

PATIENT
  Age: 32 Year
  Sex: Male

DRUGS (27)
  1. VALPROIC ACID [Suspect]
     Active Substance: VALPROIC ACID
     Indication: Psychotic disorder
  2. RISPERIDONE [Suspect]
     Active Substance: RISPERIDONE
     Indication: Psychotic disorder
  3. CARBAMAZEPINE [Suspect]
     Active Substance: CARBAMAZEPINE
     Indication: Psychotic disorder
  4. ZIPRASIDONE [Concomitant]
     Active Substance: ZIPRASIDONE
     Indication: Psychotic disorder
  5. PALIPERIDONE [Concomitant]
     Active Substance: PALIPERIDONE
     Indication: Psychotic disorder
  6. CHLORPROMAZINE [Concomitant]
     Active Substance: CHLORPROMAZINE
     Indication: Psychotic disorder
  7. OLANZAPINE [Concomitant]
     Active Substance: OLANZAPINE
     Indication: Psychotic disorder
     Route: 048
  8. HALOPERIDOL [Concomitant]
     Active Substance: HALOPERIDOL
     Indication: Psychotic disorder
  9. FLUPHENAZINE [Concomitant]
     Active Substance: FLUPHENAZINE
     Indication: Psychotic disorder
  10. MAGNESIUM [Concomitant]
     Active Substance: MAGNESIUM
     Indication: Nutritional supplementation
  11. POTASSIUM [Concomitant]
     Active Substance: POTASSIUM
     Indication: Nutritional supplementation
  12. ZINC [Concomitant]
     Active Substance: ZINC
     Indication: Nutritional supplementation
  13. THIAMINE [Concomitant]
     Active Substance: THIAMINE
     Indication: Nutritional supplementation
  14. COBALAMIN [Concomitant]
     Active Substance: COBALAMIN
     Indication: Nutritional supplementation
  15. ASENAPINE [Concomitant]
     Active Substance: ASENAPINE
     Indication: Agitation
     Route: 060
  16. OLANZAPINE [Concomitant]
     Active Substance: OLANZAPINE
     Indication: Agitation
     Route: 030
  17. OLANZAPINE [Concomitant]
     Active Substance: OLANZAPINE
     Indication: Agitation
  18. FLUPHENAZINE [Concomitant]
     Active Substance: FLUPHENAZINE
     Indication: Agitation
  19. OLANZAPINE [Concomitant]
     Active Substance: OLANZAPINE
     Indication: Psychotic disorder
     Route: 030
  20. ASENAPINE [Concomitant]
     Active Substance: ASENAPINE
     Indication: Agitation
     Route: 060
  21. RISPERIDONE [Suspect]
     Active Substance: RISPERIDONE
     Indication: Agitation
  22. VALPROIC ACID [Suspect]
     Active Substance: VALPROIC ACID
     Indication: Agitation
  23. CARBAMAZEPINE [Suspect]
     Active Substance: CARBAMAZEPINE
     Indication: Agitation
  24. ZIPRASIDONE [Concomitant]
     Active Substance: ZIPRASIDONE
     Indication: Agitation
  25. PALIPERIDONE [Concomitant]
     Active Substance: PALIPERIDONE
     Indication: Agitation
  26. CHLORPROMAZINE [Concomitant]
     Active Substance: CHLORPROMAZINE
     Indication: Agitation
  27. HALOPERIDOL [Concomitant]
     Active Substance: HALOPERIDOL
     Indication: Agitation

REACTIONS (1)
  - Treatment noncompliance [Unknown]
